FAERS Safety Report 6263055-8 (Version None)
Quarter: 2009Q3

REPORT INFORMATION
  Report Type: 
  Country: None (occurrence: None)
  Receive Date: 20090708
  Receipt Date: 20090708
  Transmission Date: 20100115
  Serious: Yes (Other)
  Sender: FDA-Public Use
  Company Number: None

PATIENT
  Age: 12 Year
  Sex: Female
  Weight: 39.9165 kg

DRUGS (1)
  1. SINGULAIR [Suspect]
     Indication: ASTHMA
     Dates: start: 20081004, end: 20090610

REACTIONS (12)
  - ABDOMINAL PAIN UPPER [None]
  - DEPRESSION [None]
  - DRUG ABUSE [None]
  - EDUCATIONAL PROBLEM [None]
  - HEADACHE [None]
  - INTENTIONAL SELF-INJURY [None]
  - MOOD ALTERED [None]
  - NIGHTMARE [None]
  - PSYCHIATRIC SYMPTOM [None]
  - SELF ESTEEM DECREASED [None]
  - SOCIAL PROBLEM [None]
  - SUICIDAL IDEATION [None]
